FAERS Safety Report 16128962 (Version 2)
Quarter: 2019Q2

REPORT INFORMATION
  Report Type: Report from Study
  Country: US (occurrence: US)
  Receive Date: 20190328
  Receipt Date: 20190409
  Transmission Date: 20190711
  Serious: Yes (Hospitalization)
  Sender: FDA-Public Use
  Company Number: US-ROCHE-2291757

PATIENT
  Age: 53 Year
  Sex: Female
  Weight: 60.2 kg

DRUGS (23)
  1. PIRFENIDONE. [Suspect]
     Active Substance: PIRFENIDONE
     Indication: RESPIRATORY DISORDER PROPHYLAXIS
     Route: 048
     Dates: end: 20190225
  2. PULMICORT RESPULES [Concomitant]
     Active Substance: BUDESONIDE
     Dosage: 0.5 MG/2ML
     Route: 065
  3. ESTRING [Concomitant]
     Active Substance: ESTRADIOL
     Route: 065
  4. LEVOTHYROXINE. [Concomitant]
     Active Substance: LEVOTHYROXINE
  5. VENTOLIN HFA [Concomitant]
     Active Substance: ALBUTEROL SULFATE
     Dosage: 108 (90 BASE ) MCG/ACT
     Route: 065
  6. CETIRIZINE HCL [Concomitant]
     Active Substance: CETIRIZINE HYDROCHLORIDE
  7. EPIPEN [Concomitant]
     Active Substance: EPINEPHRINE
     Dosage: 0. 3 MG/0 . 3ML
     Route: 065
  8. PROTONIX [Concomitant]
     Active Substance: PANTOPRAZOLE SODIUM
     Route: 065
  9. KLOR-CON [Concomitant]
     Active Substance: POTASSIUM CHLORIDE
     Route: 065
  10. PREDNISONE. [Concomitant]
     Active Substance: PREDNISONE
     Route: 065
  11. BACTRIM [Concomitant]
     Active Substance: SULFAMETHOXAZOLE\TRIMETHOPRIM
     Dosage: 400MG/80MG
     Route: 065
  12. CARDIZEM CD [Concomitant]
     Active Substance: DILTIAZEM HYDROCHLORIDE
     Route: 065
  13. IMBRUVICA [Concomitant]
     Active Substance: IBRUTINIB
     Route: 065
  14. ROBITUSSIN AC (UNITED STATES) [Concomitant]
     Dosage: 100MG- 10MG/5 ML
     Route: 065
  15. FLONASE [Concomitant]
     Active Substance: FLUTICASONE PROPIONATE
     Route: 065
  16. BACTROBAN [Concomitant]
     Active Substance: MUPIROCIN\MUPIROCIN CALCIUM
     Route: 065
  17. NORCO [Concomitant]
     Active Substance: ACETAMINOPHEN\HYDROCODONE BITARTRATE
     Dosage: 10MG/325MG
     Route: 065
  18. SINGULAIR [Concomitant]
     Active Substance: MONTELUKAST SODIUM
     Route: 065
  19. ADVAIR HFA [Concomitant]
     Active Substance: FLUTICASONE PROPIONATE\SALMETEROL XINAFOATE
     Route: 065
  20. ATIVAN [Concomitant]
     Active Substance: LORAZEPAM
     Route: 065
  21. ZIOPTAN [Concomitant]
     Active Substance: TAFLUPROST
  22. VIBRAMYCIN [Concomitant]
     Active Substance: DOXYCYCLINE
  23. ACYCLOVIR. [Concomitant]
     Active Substance: ACYCLOVIR
     Route: 065

REACTIONS (1)
  - Supraventricular tachycardia [Recovered/Resolved]

NARRATIVE: CASE EVENT DATE: 20190226
